FAERS Safety Report 7371064-0 (Version None)
Quarter: 2011Q1

REPORT INFORMATION
  Report Type: 
  Country: None (occurrence: None)
  Receive Date: 20110318
  Receipt Date: 20110318
  Transmission Date: 20110831
  Serious: Yes (Life-Threatening, Hospitalization, Other)
  Sender: FDA-Public Use
  Company Number: None

PATIENT
  Age: 43 Year
  Sex: Male
  Weight: 68.0396 kg

DRUGS (1)
  1. SEPTRA [Suspect]
     Indication: BRONCHITIS
     Dosage: 1 TAB 2
     Dates: start: 20101002, end: 20101006

REACTIONS (3)
  - PANIC ATTACK [None]
  - STEVENS-JOHNSON SYNDROME [None]
  - SCAR [None]
